FAERS Safety Report 15298946 (Version 1)
Quarter: 2018Q3

REPORT INFORMATION
  Report Type: Other
  Country: US (occurrence: US)
  Receive Date: 20180821
  Receipt Date: 20180821
  Transmission Date: 20181010
  Serious: Yes (Other)
  Sender: FDA-Public Use
  Company Number: US-DEXPHARM-20180601

PATIENT
  Age: 16 Month
  Sex: Female

DRUGS (2)
  1. SODIUM BICARBONATE. [Suspect]
     Active Substance: SODIUM BICARBONATE
  2. OMEPRAZOLE. [Suspect]
     Active Substance: OMEPRAZOLE

REACTIONS (1)
  - Accidental overdose [Recovered/Resolved]
